FAERS Safety Report 18296112 (Version 2)
Quarter: 2020Q4

REPORT INFORMATION
  Report Type: Spontaneous
  Country: IT (occurrence: IT)
  Receive Date: 20200922
  Receipt Date: 20201110
  Transmission Date: 20210113
  Serious: Yes (Other)
  Sender: FDA-Public Use
  Company Number: IT-PFIZER INC-2020362660

PATIENT
  Age: 51 Year
  Sex: Male

DRUGS (5)
  1. KEPPRA [Concomitant]
     Active Substance: LEVETIRACETAM
     Dosage: 500 MG
  2. COLISTIMETHATE SODIUM. [Concomitant]
     Active Substance: COLISTIMETHATE SODIUM
     Dosage: UNK
  3. CASPOFUNGIN [Concomitant]
     Active Substance: CASPOFUNGIN
     Dosage: 50 MG
  4. NIVESTIM [Suspect]
     Active Substance: FILGRASTIM
     Indication: NEUTROPENIA
     Dosage: 1 DF, 1X/DAY
     Route: 058
     Dates: start: 20200830
  5. ZINFORO [Concomitant]
     Active Substance: CEFTAROLINE FOSAMIL
     Dosage: 600 MG

REACTIONS (3)
  - Neutropenia [Unknown]
  - Leukopenia [Unknown]
  - Drug ineffective [Unknown]

NARRATIVE: CASE EVENT DATE: 20200903
